FAERS Safety Report 8427278-1 (Version None)
Quarter: 2012Q2

REPORT INFORMATION
  Report Type: 
  Country: None (occurrence: None)
  Receive Date: 20120611
  Receipt Date: 20120605
  Transmission Date: 20120825
  Serious: Yes (Other)
  Sender: FDA-Public Use
  Company Number: GB-GLAXOSMITHKLINE-B0792674A

PATIENT
  Sex: Female

DRUGS (10)
  1. CLOBETASOL PROPIONATE [Suspect]
     Indication: PRODUCT USED FOR UNKNOWN INDICATION
     Route: 065
  2. BISOPROLOL FUMARATE [Concomitant]
  3. WARFARIN [Concomitant]
  4. FUROSEMIDE [Concomitant]
  5. RAMIPRIL [Concomitant]
  6. ADCAL [Concomitant]
  7. LANSOPRAZOLE [Concomitant]
  8. FERROUS FUMARATE [Concomitant]
  9. PROLIA [Suspect]
     Indication: OSTEOPOROSIS POSTMENOPAUSAL
     Route: 065
     Dates: start: 20120213
  10. FUROSEMIDE [Concomitant]

REACTIONS (1)
  - CELLULITIS [None]
